FAERS Safety Report 9786916 (Version 3)
Quarter: 2014Q2

REPORT INFORMATION
  Report Type: Spontaneous
  Country: US (occurrence: US)
  Receive Date: 20131227
  Receipt Date: 20140414
  Transmission Date: 20141212
  Serious: No
  Sender: FDA-Public Use
  Company Number: US-PFIZER INC-2013367879

PATIENT
  Age: 41 Year
  Sex: Female
  Weight: 83.9 kg

DRUGS (9)
  1. SUTENT [Suspect]
     Indication: PANCREATIC NEUROENDOCRINE TUMOUR METASTATIC
     Dosage: 37.5 MG, DAILY
     Dates: start: 20130807
  2. COMPAZINE [Concomitant]
     Indication: NAUSEA
     Dosage: UNK
  3. LEVOTHYROXINE [Concomitant]
     Indication: THYROID DISORDER
     Dosage: UNK
  4. NORCO [Concomitant]
     Indication: PAIN
     Dosage: UNK
  5. PROTONIX [Concomitant]
     Dosage: UNK
  6. EFFEXOR [Concomitant]
     Dosage: UNK
  7. CREON [Concomitant]
     Dosage: UNK
  8. MAGNESIUM [Concomitant]
     Dosage: UNK
  9. REGLAN [Concomitant]
     Dosage: UNK

REACTIONS (5)
  - Malaise [Not Recovered/Not Resolved]
  - Dysphonia [Not Recovered/Not Resolved]
  - Dysphagia [Unknown]
  - Hypophagia [Unknown]
  - Nausea [Unknown]
